FAERS Safety Report 21315227 (Version 1)
Quarter: 2022Q3

REPORT INFORMATION
  Report Type: Spontaneous
  Country: AT (occurrence: AT)
  Receive Date: 20220909
  Receipt Date: 20220909
  Transmission Date: 20221026
  Serious: Yes (Death)
  Sender: FDA-Public Use
  Company Number: AT-BAYER-2022A126457

PATIENT
  Sex: Male

DRUGS (1)
  1. NUBEQA [Suspect]
     Active Substance: DAROLUTAMIDE
     Indication: Hormone-dependent prostate cancer
     Dosage: ONLY ONE DOSE ADMINISTERED

REACTIONS (2)
  - Death [Fatal]
  - Off label use [None]
